FAERS Safety Report 20650872 (Version 1)
Quarter: 2022Q1

REPORT INFORMATION
  Report Type: Spontaneous
  Country: None (occurrence: US)
  Receive Date: 20220329
  Receipt Date: 20220329
  Transmission Date: 20220423
  Serious: Yes (Other)
  Sender: FDA-Public Use
  Company Number: US-Church + Dwight Co., Inc.-2127211

PATIENT
  Sex: Female

DRUGS (1)
  1. SODIUM FLUORIDE [Suspect]
     Active Substance: SODIUM FLUORIDE
     Indication: Dental care
     Route: 004

REACTIONS (2)
  - Anaphylactic shock [Not Recovered/Not Resolved]
  - Cheilitis [Not Recovered/Not Resolved]
